FAERS Safety Report 7115584-2 (Version None)
Quarter: 2010Q4

REPORT INFORMATION
  Report Type: 
  Country: None (occurrence: None)
  Receive Date: 20101122
  Receipt Date: 20101110
  Transmission Date: 20110411
  Serious: Yes (Death)
  Sender: FDA-Public Use
  Company Number: US-NOVEN-10US001407

PATIENT
  Sex: Male
  Weight: 93.424 kg

DRUGS (4)
  1. PEXEVA [Suspect]
     Indication: DEPRESSION
     Dosage: 20 MG, QD
     Route: 048
     Dates: start: 20101011, end: 20101013
  2. PEXEVA [Suspect]
     Indication: ANXIETY
  3. ATIVAN [Concomitant]
     Indication: ANXIETY
     Dosage: .5 MG, TID
     Route: 048
     Dates: start: 20101011, end: 20101013
  4. VITAMINS [Concomitant]
     Indication: PRODUCT USED FOR UNKNOWN INDICATION

REACTIONS (1)
  - COMPLETED SUICIDE [None]
